FAERS Safety Report 24221412 (Version 1)
Quarter: 2024Q3

REPORT INFORMATION
  Report Type: Spontaneous
  Country: CN (occurrence: CN)
  Receive Date: 20240819
  Receipt Date: 20240819
  Transmission Date: 20241017
  Serious: Yes (Other)
  Sender: ROCHE
  Company Number: CN-ROCHE-10000052947

PATIENT
  Age: 64 Year
  Sex: Female

DRUGS (8)
  1. TRASTUZUMAB [Suspect]
     Active Substance: TRASTUZUMAB
     Indication: HER2 positive breast cancer
     Dosage: FIRST CYCLE
     Route: 065
  2. TRASTUZUMAB [Suspect]
     Active Substance: TRASTUZUMAB
     Dosage: D1, 21 DAYS/CYCLE
     Route: 065
  3. PERTUZUMAB [Suspect]
     Active Substance: PERTUZUMAB
     Indication: HER2 positive breast cancer
     Dosage: D1, 21 DAYS/CYCLE
     Route: 065
  4. PERTUZUMAB [Suspect]
     Active Substance: PERTUZUMAB
     Dosage: FIRST CYCLE
     Route: 065
  5. DOCETAXEL [Suspect]
     Active Substance: DOCETAXEL\DOCETAXEL ANHYDROUS
     Indication: HER2 positive breast cancer
     Dosage: DAY 1
     Route: 065
     Dates: start: 20220706, end: 20221031
  6. PYROTINIB MALEATE [Suspect]
     Active Substance: PYROTINIB MALEATE
     Indication: HER2 positive breast cancer
     Dosage: 6 CYCLES
     Route: 065
     Dates: start: 20220706, end: 20221031
  7. PYROTINIB MALEATE [Suspect]
     Active Substance: PYROTINIB MALEATE
     Dosage: 11 CYCLES
     Route: 065
     Dates: start: 20221212, end: 20230715
  8. ANASTROZOLE [Suspect]
     Active Substance: ANASTROZOLE
     Indication: HER2 positive breast cancer
     Route: 065
     Dates: start: 20221212, end: 20230715

REACTIONS (3)
  - Diarrhoea [Recovered/Resolved]
  - Granulocytopenia [Recovered/Resolved]
  - Hypokalaemia [Recovered/Resolved]
